FAERS Safety Report 25837767 (Version 1)
Quarter: 2025Q3

REPORT INFORMATION
  Report Type: Spontaneous
  Country: US (occurrence: US)
  Receive Date: 20250923
  Receipt Date: 20250923
  Transmission Date: 20251021
  Serious: Yes (Hospitalization, Other)
  Sender: AMGEN
  Company Number: US-AMGEN-USASP2025184462

PATIENT
  Age: 47 Year
  Sex: Female

DRUGS (5)
  1. PREDNISONE [Suspect]
     Active Substance: PREDNISONE
     Indication: Antinuclear antibody positive
     Dosage: 40 MILLIGRAM, QD, IN SEP/IN AN UNKNOWN YEAR
     Route: 065
  2. PREDNISONE [Suspect]
     Active Substance: PREDNISONE
     Route: 065
  3. OBINUTUZUMAB [Concomitant]
     Active Substance: OBINUTUZUMAB
     Indication: Chronic lymphocytic leukaemia
  4. VENETOCLAX [Concomitant]
     Active Substance: VENETOCLAX
     Indication: Chronic lymphocytic leukaemia
  5. DOXYCYCLINE [Concomitant]
     Active Substance: DOXYCYCLINE
     Indication: Prophylaxis

REACTIONS (7)
  - Encephalitis enteroviral [Unknown]
  - Hepatitis acute [Unknown]
  - Hypogammaglobulinaemia [Unknown]
  - Pulmonary congestion [Unknown]
  - Biliary dilatation [Unknown]
  - Lung opacity [Unknown]
  - Off label use [Unknown]
